FAERS Safety Report 24166894 (Version 1)
Quarter: 2024Q3

REPORT INFORMATION
  Report Type: Spontaneous
  Country: TR (occurrence: None)
  Receive Date: 20240802
  Receipt Date: 20240802
  Transmission Date: 20241016
  Serious: Yes (Hospitalization, Other)
  Sender: NATCO PHARMA
  Company Number: TR-NATCOUSA-2024-NATCOUSA-000216

PATIENT
  Age: 70 Year
  Sex: Male

DRUGS (1)
  1. ERLOTINIB [Suspect]
     Active Substance: ERLOTINIB
     Indication: Lung cancer metastatic

REACTIONS (2)
  - Blepharitis [Recovering/Resolving]
  - Keratitis [Recovered/Resolved]
